FAERS Safety Report 5253520-4 (Version None)
Quarter: 2007Q1

REPORT INFORMATION
  Report Type: 
  Country: None (occurrence: None)
  Receive Date: 20070301
  Receipt Date: 20070223
  Transmission Date: 20070707
  Serious: Yes (Other)
  Sender: FDA-Public Use
  Company Number: FI-PFIZER INC-2007010817

PATIENT
  Sex: Female
  Weight: 54 kg

DRUGS (6)
  1. CHAMPIX [Suspect]
     Indication: EX-SMOKER
     Route: 048
  2. DOXAL [Concomitant]
     Indication: DEPRESSION
     Route: 048
  3. ZITHROMAX [Concomitant]
  4. CIPRALEX [Concomitant]
     Indication: DEPRESSION
     Dosage: DAILY DOSE:5MG
     Route: 048
  5. MONTELUKAST SODIUM [Concomitant]
     Indication: RHINITIS
     Dosage: DAILY DOSE:10MG
     Route: 048
     Dates: start: 20070112, end: 20070208
  6. SIRDALUD [Concomitant]
     Route: 048

REACTIONS (2)
  - HYPOGLYCAEMIA [None]
  - NAUSEA [None]
